FAERS Safety Report 9289555 (Version 1)
Quarter: 2013Q2

REPORT INFORMATION
  Report Type: Spontaneous
  Country: US (occurrence: US)
  Receive Date: 20130515
  Receipt Date: 20130515
  Transmission Date: 20140414
  Serious: Yes (Other)
  Sender: FDA-Public Use
  Company Number: US-INDICUS PHARMA-000087

PATIENT
  Age: 71 Year
  Sex: Male

DRUGS (1)
  1. METFORMIN HYDROCHLORIDE [Suspect]
     Indication: HYPERGLYCAEMIA

REACTIONS (1)
  - Pseudoporphyria [Recovered/Resolved]
